FAERS Safety Report 17291864 (Version 1)
Quarter: 2020Q1

REPORT INFORMATION
  Report Type: Spontaneous
  Country: US (occurrence: US)
  Receive Date: 20200118
  Receipt Date: 20200118
  Transmission Date: 20200409
  Serious: Yes (Disabling)
  Sender: FDA-Public Use
  Company Number: None

PATIENT
  Age: 70 Year
  Sex: Female
  Weight: 62.1 kg

DRUGS (2)
  1. LISINOPRIL. [Concomitant]
     Active Substance: LISINOPRIL
  2. AZITHROMYCIN ANHYDROUS. [Suspect]
     Active Substance: AZITHROMYCIN ANHYDROUS
     Indication: PNEUMONIA
     Dosage: ?          QUANTITY:250 TABLET(S);?
     Route: 048
     Dates: start: 20200108, end: 20200112

REACTIONS (6)
  - Diarrhoea [None]
  - Eye pain [None]
  - Abdominal pain upper [None]
  - Fatigue [None]
  - Headache [None]
  - Anal incontinence [None]

NARRATIVE: CASE EVENT DATE: 20200112
